FAERS Safety Report 7424980-5 (Version None)
Quarter: 2011Q2

REPORT INFORMATION
  Report Type: 
  Country: None (occurrence: None)
  Receive Date: 20110419
  Receipt Date: 20110325
  Transmission Date: 20111010
  Serious: Yes (Other)
  Sender: FDA-Public Use
  Company Number: US-BAYER-201028824NA

PATIENT
  Age: 26 Year
  Sex: Female
  Weight: 70.295 kg

DRUGS (10)
  1. YAZ [Suspect]
     Indication: PRODUCT USED FOR UNKNOWN INDICATION
     Route: 048
     Dates: start: 20080201
  2. ALBUTEROL INHALER [Concomitant]
     Indication: ASTHMA
  3. ASPIRIN [Concomitant]
  4. DROSPIRENONE AND ETHINYL ESTRADIOL [Suspect]
     Indication: PRODUCT USED FOR UNKNOWN INDICATION
     Route: 048
     Dates: start: 20080201
  5. ZOLOFT [Concomitant]
  6. YASMIN [Suspect]
     Indication: PRODUCT USED FOR UNKNOWN INDICATION
     Route: 048
     Dates: start: 20080201
  7. PROVENTIL [Concomitant]
     Indication: ASTHMA
  8. SERTRALINE [Concomitant]
     Indication: DEPRESSION
  9. IBUPROFEN [Concomitant]
  10. CIPROFLOXACIN [Concomitant]
     Dosage: UNK
     Dates: start: 20080626

REACTIONS (2)
  - DEPRESSION [None]
  - DEEP VEIN THROMBOSIS [None]
